FAERS Safety Report 8261470-4 (Version None)
Quarter: 2012Q2

REPORT INFORMATION
  Report Type: 
  Country: None (occurrence: None)
  Receive Date: 20120405
  Receipt Date: 20120329
  Transmission Date: 20120825
  Serious: Yes (Hospitalization)
  Sender: FDA-Public Use
  Company Number: US-BAYER-2012-031636

PATIENT
  Age: 22 Year
  Sex: Female
  Weight: 68.027 kg

DRUGS (3)
  1. YAZ [Suspect]
     Indication: DYSMENORRHOEA
  2. YAZ [Suspect]
     Indication: MENORRHAGIA
  3. NAPROSYN [Concomitant]
     Indication: DYSMENORRHOEA

REACTIONS (1)
  - PULMONARY EMBOLISM [None]
